FAERS Safety Report 20052547 (Version 1)
Quarter: 2021Q4

REPORT INFORMATION
  Report Type: Spontaneous
  Country: IT (occurrence: IT)
  Receive Date: 20211110
  Receipt Date: 20211110
  Transmission Date: 20220303
  Serious: Yes (Other)
  Sender: FDA-Public Use
  Company Number: IT-CELGENE-ITA-20211101217

PATIENT
  Age: 63 Year
  Sex: Male
  Weight: 100 kg

DRUGS (1)
  1. REVLIMID [Suspect]
     Active Substance: LENALIDOMIDE
     Indication: Plasma cell myeloma
     Dosage: CYCLICAL
     Route: 048
     Dates: start: 20170301, end: 20210131

REACTIONS (1)
  - Colon cancer [Recovered/Resolved with Sequelae]

NARRATIVE: CASE EVENT DATE: 20210920
